FAERS Safety Report 5724951-0 (Version None)
Quarter: 2008Q2

REPORT INFORMATION
  Report Type: 
  Country: None (occurrence: None)
  Receive Date: 20080501
  Receipt Date: 20080421
  Transmission Date: 20081010
  Serious: Yes (Life-Threatening, Hospitalization)
  Sender: FDA-Public Use
  Company Number: DE-AMGEN-UK144415

PATIENT
  Weight: 46 kg

DRUGS (17)
  1. MIMPARA [Suspect]
     Indication: HYPERPARATHYROIDISM SECONDARY
     Route: 048
     Dates: start: 20050202
  2. MIMPARA [Suspect]
     Route: 048
  3. PANTOPRAZOLE SODIUM [Concomitant]
  4. CALCIUM ACETATE [Concomitant]
  5. ASPIRIN [Concomitant]
  6. CALCIUM POLYSTYRENE SULFONATE [Concomitant]
  7. DREISAVIT N [Concomitant]
  8. ALFACALCIDOL [Concomitant]
  9. ENALAPRIL [Concomitant]
  10. METOCLOPRAMIDE [Concomitant]
  11. FERRLECIT [Concomitant]
  12. LACTULOSE [Concomitant]
  13. NEORECORMON [Concomitant]
  14. NEXIUM [Concomitant]
  15. PRAVASTATIN [Concomitant]
  16. RENAGEL [Concomitant]
  17. VALORON N [Concomitant]

REACTIONS (2)
  - GASTRIC HAEMORRHAGE [None]
  - GASTRIC ULCER [None]
